FAERS Safety Report 8881002 (Version 3)
Quarter: 2012Q4

REPORT INFORMATION
  Report Type: Report from Study
  Country: JP (occurrence: JP)
  Receive Date: 20121101
  Receipt Date: 20121212
  Transmission Date: 20130627
  Serious: Yes (Disabling)
  Sender: FDA-Public Use
  Company Number: JP-PFIZER INC-2012267309

PATIENT
  Age: 9 Month
  Sex: Female
  Weight: 6.3 kg

DRUGS (1)
  1. REVATIO [Suspect]
     Dosage: 8 mg, 3x/day
     Route: 048
     Dates: start: 20120425

REACTIONS (1)
  - Deafness neurosensory [Unknown]
